FAERS Safety Report 20542348 (Version 1)
Quarter: 2022Q1

REPORT INFORMATION
  Report Type: Spontaneous
  Country: US (occurrence: None)
  Receive Date: 20220302
  Receipt Date: 20220302
  Transmission Date: 20220423
  Serious: No
  Sender: FDA-Public Use
  Company Number: None

PATIENT
  Age: 62 Year
  Sex: Female

DRUGS (1)
  1. TACROLIMUS [Suspect]
     Active Substance: TACROLIMUS
     Dosage: FREQUENCY : TWICE A DAY;?
     Route: 048
     Dates: start: 201909

REACTIONS (4)
  - Thermal burn [None]
  - Osteomyelitis [None]
  - Foot amputation [None]
  - COVID-19 [None]

NARRATIVE: CASE EVENT DATE: 20220101
